FAERS Safety Report 10044486 (Version 1)
Quarter: 2014Q1

REPORT INFORMATION
  Report Type: Spontaneous
  Country: US (occurrence: None)
  Receive Date: 20140306
  Receipt Date: 20140306
  Transmission Date: 20141002
  Serious: Yes (Other)
  Sender: FDA-Public Use
  Company Number: 163-21880-13070424

PATIENT
  Age: 59 Year
  Sex: Female

DRUGS (17)
  1. REVLIMID [Suspect]
     Indication: PLASMA CELL MYELOMA
     Route: 048
     Dates: start: 200907
  2. ACYCLOVIR (ACICLOVIR) [Concomitant]
  3. ALLEGRA (FEXOFENADINE HYDROCHLORIDE) [Concomitant]
  4. ASPIRIN (ACETYLSALICYLIC ACID) [Concomitant]
  5. ASTEPRO (AZELASTINE HYDROCHLORIDE) [Concomitant]
  6. CYMBALTA [Concomitant]
  7. DEXAMETHASONE (DEXAMETHASONE) [Concomitant]
  8. FEXOFENADINE (FEXOFENADINE) [Concomitant]
  9. FISH OIL (FISH OIL) [Concomitant]
  10. FLAX SEED OIL (LINUM USITATISSIMUM SEED OIL) [Concomitant]
  11. FLONASE (FLUTICASONE PROPIONATE) [Concomitant]
  12. HYZAAR (HYZAAR) [Concomitant]
  13. LIDODERM (LIDOCAINE) [Concomitant]
  14. MULTIVITAMINS (MULTIVITAMINS) [Concomitant]
  15. OMEPRAZOLE (OMEPRAZOLE) [Concomitant]
  16. SINGULAIR (MONTELUKAST SODIUM) [Concomitant]
  17. VITAMIN D (ERGOCALCIFEROL) [Concomitant]

REACTIONS (1)
  - Pulmonary embolism [None]
